FAERS Safety Report 13954221 (Version 1)
Quarter: 2017Q3

REPORT INFORMATION
  Report Type: Spontaneous
  Country: US (occurrence: US)
  Receive Date: 20170911
  Receipt Date: 20170911
  Transmission Date: 20171128
  Serious: Yes (Other)
  Sender: FDA-Public Use
  Company Number: US-AMGEN-USASP2017127529

PATIENT
  Age: 77 Year
  Sex: Female
  Weight: 54.88 kg

DRUGS (1)
  1. REPATHA [Suspect]
     Active Substance: EVOLOCUMAB
     Indication: BLOOD CHOLESTEROL INCREASED
     Dosage: 140 MG, Q2WK
     Route: 030
     Dates: start: 20170804, end: 20170818

REACTIONS (1)
  - Injection site warmth [Recovered/Resolved]

NARRATIVE: CASE EVENT DATE: 20170804
